FAERS Safety Report 9263795 (Version 1)
Quarter: 2013Q2

REPORT INFORMATION
  Report Type: Spontaneous
  Country: US (occurrence: US)
  Receive Date: 20130430
  Receipt Date: 20130430
  Transmission Date: 20140414
  Serious: Yes (Hospitalization, Other)
  Sender: FDA-Public Use
  Company Number: US-BAYER-2013-052710

PATIENT
  Age: 43 Year
  Sex: Female
  Weight: 112 kg

DRUGS (22)
  1. YAZ [Suspect]
  2. YASMIN [Suspect]
  3. OCELLA [Suspect]
  4. AMBIEN [Concomitant]
     Indication: SLEEP DISORDER THERAPY
     Dosage: 5 MG, UNK
  5. ADVAIR [Concomitant]
  6. ALBUTEROL [Concomitant]
  7. VITAMIN D [Concomitant]
  8. CALCIUM [Concomitant]
  9. MULTIVIT [Concomitant]
  10. HYDROCODONE [Concomitant]
  11. TORADOL [Concomitant]
  12. PERCOCET [Concomitant]
  13. COMPAZINE [Concomitant]
  14. RESTORIL [Concomitant]
  15. BACITRACIN [Concomitant]
  16. BUPIVACAINE [Concomitant]
  17. CEFAZOLIN [Concomitant]
  18. DECADRON [Concomitant]
  19. FENTANYL [Concomitant]
  20. TRAZODONE [Concomitant]
  21. PRED [Concomitant]
     Dosage: 20 MG, 2 DAILY TIMES 5 DAYS
  22. AUGMENTIN [Concomitant]
     Dosage: 875 MG, UNK

REACTIONS (2)
  - Biliary dyskinesia [None]
  - Pulmonary embolism [Recovered/Resolved]
